FAERS Safety Report 24066291 (Version 2)
Quarter: 2024Q3

REPORT INFORMATION
  Report Type: Spontaneous
  Country: FR (occurrence: None)
  Receive Date: 20240709
  Receipt Date: 20240723
  Transmission Date: 20241016
  Serious: Yes (Death, Life-Threatening)
  Sender: ASTRAZENECA
  Company Number: 2024A156125

PATIENT
  Age: 66 Year
  Sex: Male

DRUGS (1)
  1. DURVALUMAB [Suspect]
     Active Substance: DURVALUMAB
     Indication: Non-small cell lung cancer
     Route: 042
     Dates: start: 20200615, end: 20200810

REACTIONS (8)
  - Acute respiratory distress syndrome [Fatal]
  - Interstitial lung disease [Fatal]
  - Cerebrovascular accident [Fatal]
  - Pneumonitis [Fatal]
  - Malignant neoplasm progression [Unknown]
  - Toxicity to various agents [Unknown]
  - Pneumonia [Unknown]
  - Alopecia [Unknown]
